FAERS Safety Report 9460782 (Version 4)
Quarter: 2015Q4

REPORT INFORMATION
  Report Type: Report from Study
  Country: JP (occurrence: JP)
  Receive Date: 20130815
  Receipt Date: 20151123
  Transmission Date: 20160305
  Serious: Yes (Hospitalization, Other)
  Sender: FDA-Public Use
  Company Number: JP-GLAXOSMITHKLINE-B0914702A

PATIENT
  Age: 8 Decade
  Sex: Male

DRUGS (5)
  1. CRAVIT [Concomitant]
     Active Substance: LEVOFLOXACIN
     Indication: PNEUMONIA
     Route: 042
     Dates: start: 20130809, end: 20130826
  2. FLUTICASONE PROPIONATE+SALMETEROL XINAFOATE [Suspect]
     Active Substance: FLUTICASONE PROPIONATE\SALMETEROL XINAFOATE
     Indication: CHRONIC OBSTRUCTIVE PULMONARY DISEASE
     Route: 055
     Dates: start: 20130725, end: 20131011
  3. MUCODYNE [Concomitant]
     Active Substance: CARBOCYSTEINE
     Indication: PNEUMONIA
     Route: 048
     Dates: start: 20130810, end: 20130830
  4. HEPARIN NA LOCK [Concomitant]
     Route: 042
     Dates: start: 20130809, end: 20130826
  5. SULBACILLIN [Concomitant]
     Active Substance: AMPICILLIN SODIUM\SULBACTAM SODIUM
     Indication: PNEUMONIA
     Route: 042
     Dates: start: 20130809, end: 20130826

REACTIONS (2)
  - Oral candidiasis [Recovered/Resolved]
  - Pneumonia [Recovered/Resolved]

NARRATIVE: CASE EVENT DATE: 20130806
